FAERS Safety Report 5025322-5 (Version None)
Quarter: 2006Q2

REPORT INFORMATION
  Report Type: 
  Country: None (occurrence: None)
  Receive Date: 20060426
  Receipt Date: 20060117
  Transmission Date: 20061013
  Serious: Yes (Other)
  Sender: FDA-Public Use
  Company Number: 2006010833

PATIENT
  Age: 57 Year
  Sex: Female
  Weight: 117.9352 kg

DRUGS (5)
  1. LYRICA [Suspect]
     Indication: NEUROPATHY
     Dosage: 150 MG (75 MG 2 IN 1 D)
     Route: 065
     Dates: start: 20060113
  2. GLUCOVANCE [Concomitant]
  3. LACTOSE (LACTOSE) [Concomitant]
  4. LIPITOR [Concomitant]
  5. ZESTRIL [Concomitant]

REACTIONS (5)
  - BLOOD PRESSURE INCREASED [None]
  - CONFUSIONAL STATE [None]
  - DISORIENTATION [None]
  - DIZZINESS [None]
  - HEADACHE [None]
